FAERS Safety Report 4529916-2 (Version None)
Quarter: 2004Q4

REPORT INFORMATION
  Report Type: 
  Country: None (occurrence: None)
  Receive Date: 20041217
  Receipt Date: 20040402
  Transmission Date: 20050328
  Serious: Yes (Hospitalization)
  Sender: FDA-Public Use
  Company Number: NL-BRISTOL-MYERS SQUIBB COMPANY-12549903

PATIENT
  Age: 44 Year
  Sex: Male

DRUGS (11)
  1. ATAZANAVIR [Suspect]
     Indication: HIV INFECTION
     Route: 048
     Dates: start: 20031201
  2. INVIRASE [Interacting]
     Dates: start: 20040310, end: 20040325
  3. RITONAVIR [Suspect]
     Indication: HIV INFECTION
     Dates: start: 20031201
  4. ENFUVIRTIDE [Concomitant]
     Route: 058
     Dates: start: 20020722
  5. DIDANOSINE [Concomitant]
     Dates: start: 20020102
  6. FUZEON [Concomitant]
     Route: 058
  7. DAPSONE [Concomitant]
  8. DARAPRIM [Concomitant]
  9. FOLIC ACID [Concomitant]
  10. SUSTANON [Concomitant]
  11. TEMAZEPAM [Concomitant]

REACTIONS (2)
  - DRUG INTERACTION [None]
  - RENAL TUBULAR NECROSIS [None]
